FAERS Safety Report 20493695 (Version 1)
Quarter: 2022Q1

REPORT INFORMATION
  Report Type: Spontaneous
  Country: US (occurrence: US)
  Receive Date: 20220221
  Receipt Date: 20220221
  Transmission Date: 20220423
  Serious: No
  Sender: FDA-Public Use
  Company Number: US-TARO-2021TAR01292

PATIENT
  Sex: Female

DRUGS (1)
  1. TRETINOIN [Suspect]
     Active Substance: TRETINOIN
     Indication: Product used for unknown indication
     Dosage: UNK,APPLIED ON FACE
     Route: 061
     Dates: start: 20211216

REACTIONS (3)
  - Burning sensation [Unknown]
  - Condition aggravated [Unknown]
  - Sensitive skin [Unknown]
